FAERS Safety Report 8131627-1 (Version None)
Quarter: 2012Q1

REPORT INFORMATION
  Report Type: 
  Country: None (occurrence: None)
  Receive Date: 20120208
  Receipt Date: 20120125
  Transmission Date: 20120608
  Serious: Yes (Death, Hospitalization, Disabling, Other)
  Sender: FDA-Public Use
  Company Number: 2012MA001152

PATIENT
  Sex: Female
  Weight: 64.8644 kg

DRUGS (35)
  1. CALCIUM CARBONATE [Concomitant]
  2. FLUSHOT [Concomitant]
  3. MONOPRIL [Concomitant]
  4. GUAIFENESIN [Concomitant]
  5. VERELAN [Concomitant]
  6. ATROPINE [Concomitant]
  7. GLUCOVANCE [Concomitant]
  8. MAG-OX [Concomitant]
  9. NORVASC [Concomitant]
  10. CALCARB [Concomitant]
  11. CEFTIN [Concomitant]
  12. COUMADIN [Concomitant]
  13. SLOW-K [Concomitant]
  14. VERAPAMIL [Concomitant]
  15. ZITHROMAX [Concomitant]
  16. POTASSIUM CHLORIDE [Concomitant]
  17. OXYCODONE HCL [Concomitant]
  18. TESSALON [Concomitant]
  19. ACTONEL [Concomitant]
  20. DEPAKOTE [Concomitant]
  21. DYAZIDE [Concomitant]
  22. PNEUMOVAX 23 [Concomitant]
  23. MORPHINE SULFATE [Concomitant]
  24. TRIMETHOPRIM [Concomitant]
  25. DIGOXIN [Suspect]
     Indication: PRODUCT USED FOR UNKNOWN INDICATION
     Dosage: 0.125 MG;QD;PO
     Route: 048
     Dates: start: 20060526, end: 20080411
  26. LASIX [Concomitant]
  27. TRAVATAN [Concomitant]
  28. APAP TAB [Concomitant]
  29. ZOLOFT [Concomitant]
  30. AMOXICILLIN [Concomitant]
  31. HALDOL [Concomitant]
  32. PHENERGAN [Concomitant]
  33. ATIVAN [Concomitant]
  34. COREG [Concomitant]
  35. NEOSPORIN [Concomitant]

REACTIONS (58)
  - ATRIAL FIBRILLATION [None]
  - CONDITION AGGRAVATED [None]
  - OVARIAN CANCER [None]
  - ALOPECIA [None]
  - ABDOMINAL PAIN [None]
  - ANXIETY [None]
  - METASTASES TO LIVER [None]
  - HERPES ZOSTER [None]
  - BRONCHITIS [None]
  - AMNESIA [None]
  - HYPOMAGNESAEMIA [None]
  - FATIGUE [None]
  - HYPERHIDROSIS [None]
  - CHILLS [None]
  - DECREASED APPETITE [None]
  - WALKING AID USER [None]
  - ERYTHEMA [None]
  - EYE SWELLING [None]
  - THROAT TIGHTNESS [None]
  - CONFUSIONAL STATE [None]
  - DEMENTIA [None]
  - CHRONIC OBSTRUCTIVE PULMONARY DISEASE [None]
  - COUGH [None]
  - WEIGHT DECREASED [None]
  - PRODUCTIVE COUGH [None]
  - PLEURAL EFFUSION [None]
  - LUNG INFILTRATION [None]
  - SPUTUM ABNORMAL [None]
  - DEPRESSION [None]
  - HYPOKALAEMIA [None]
  - ANOXIA [None]
  - MEMORY IMPAIRMENT [None]
  - BLOOD PRESSURE INCREASED [None]
  - OEDEMA [None]
  - PNEUMONIA [None]
  - CARDIAC FAILURE CONGESTIVE [None]
  - NO THERAPEUTIC RESPONSE [None]
  - HYPOXIA [None]
  - DYSPNOEA [None]
  - PYREXIA [None]
  - COGNITIVE DISORDER [None]
  - SKIN DISORDER [None]
  - ABDOMINAL TENDERNESS [None]
  - TACHYCARDIA [None]
  - FALL [None]
  - TREATMENT NONCOMPLIANCE [None]
  - HYPERTENSION [None]
  - OEDEMA PERIPHERAL [None]
  - MOBILITY DECREASED [None]
  - VISUAL IMPAIRMENT [None]
  - OROPHARYNGEAL PAIN [None]
  - UPPER RESPIRATORY TRACT INFECTION [None]
  - DIARRHOEA [None]
  - VITAMIN B12 DEFICIENCY [None]
  - HYPERLIPIDAEMIA [None]
  - WHEEZING [None]
  - DYSURIA [None]
  - MENTAL DISORDER [None]
